FAERS Safety Report 9834929 (Version 2)
Quarter: 2014Q1

REPORT INFORMATION
  Report Type: Spontaneous
  Country: FR (occurrence: FR)
  Receive Date: 20140122
  Receipt Date: 20140213
  Transmission Date: 20141002
  Serious: Yes (Hospitalization)
  Sender: FDA-Public Use
  Company Number: FR-GLAXOSMITHKLINE-B0961329A

PATIENT
  Age: 91 Year
  Sex: Female

DRUGS (5)
  1. ARIXTRA [Suspect]
     Indication: THROMBOPHLEBITIS
     Dosage: 5MG PER DAY
     Route: 058
     Dates: start: 20120409, end: 20120506
  2. COUMADINE [Suspect]
     Indication: THROMBOPHLEBITIS
     Route: 048
     Dates: start: 201205, end: 20120506
  3. DEPAKINE [Concomitant]
  4. SEROPLEX [Concomitant]
  5. SERESTA [Concomitant]

REACTIONS (2)
  - Haematoma [Recovered/Resolved]
  - Necrosis [Recovered/Resolved]
